FAERS Safety Report 8354709-8 (Version None)
Quarter: 2012Q2

REPORT INFORMATION
  Report Type: 
  Country: None (occurrence: None)
  Receive Date: 20120511
  Receipt Date: 20120504
  Transmission Date: 20120825
  Serious: Yes (Hospitalization)
  Sender: FDA-Public Use
  Company Number: US-GLAXOSMITHKLINE-A0939976A

PATIENT
  Age: 61 Year
  Sex: Male
  Weight: 78.2 kg

DRUGS (7)
  1. AVANDIA [Suspect]
     Indication: DIABETES MELLITUS
     Dosage: 4MG PER DAY
     Route: 048
     Dates: start: 20030101, end: 20070701
  2. PRAVASTATIN [Concomitant]
  3. DIOVAN [Concomitant]
  4. LEVOTHYROXINE SODIUM [Concomitant]
  5. METOPROLOL TARTRATE [Concomitant]
  6. GLUCOVANCE [Concomitant]
  7. HYDROCHLOROTHIAZIDE [Concomitant]

REACTIONS (14)
  - CORONARY ARTERY BYPASS [None]
  - SLEEP APNOEA SYNDROME [None]
  - HYPOTONIA [None]
  - DIZZINESS [None]
  - PAIN [None]
  - ASTHENIA [None]
  - PERIPHERAL VASCULAR DISORDER [None]
  - CORONARY ARTERY DISEASE [None]
  - CHRONIC OBSTRUCTIVE PULMONARY DISEASE [None]
  - DIZZINESS POSTURAL [None]
  - INSOMNIA [None]
  - CARDIAC FAILURE CONGESTIVE [None]
  - WEIGHT DECREASED [None]
  - CAROTID ARTERY STENOSIS [None]
